FAERS Safety Report 9566190 (Version 1)
Quarter: 2013Q3

REPORT INFORMATION
  Report Type: Spontaneous
  Country: US (occurrence: US)
  Receive Date: 20130930
  Receipt Date: 20130930
  Transmission Date: 20140515
  Serious: No
  Sender: FDA-Public Use
  Company Number: US-ASTRAZENECA-2013SE59089

PATIENT
  Age: 80 Year
  Sex: Female
  Weight: 68.9 kg

DRUGS (5)
  1. BRILINTA [Suspect]
     Indication: PERIPHERAL ARTERIAL OCCLUSIVE DISEASE
     Route: 048
     Dates: start: 20130708
  2. BRILINTA [Suspect]
     Indication: ANTIPLATELET THERAPY
     Route: 048
     Dates: start: 20130708
  3. ASPIRIN [Concomitant]
     Indication: CARDIAC DISORDER
     Route: 048
  4. LORAZEPAM [Concomitant]
     Indication: STRESS
     Route: 048
  5. LORAZEPAM [Concomitant]
     Indication: BLOOD PRESSURE MANAGEMENT
     Route: 048

REACTIONS (5)
  - Back pain [Not Recovered/Not Resolved]
  - Hypokinesia [Not Recovered/Not Resolved]
  - Gait disturbance [Not Recovered/Not Resolved]
  - Pain [Unknown]
  - Off label use [Unknown]
